FAERS Safety Report 23215944 (Version 1)
Quarter: 2023Q4

REPORT INFORMATION
  Report Type: Report from Study
  Country: DE (occurrence: DE)
  Receive Date: 20231122
  Receipt Date: 20231122
  Transmission Date: 20240109
  Serious: Yes (Other)
  Sender: FDA-Public Use
  Company Number: DE-ABBVIE-5497995

PATIENT
  Sex: Male

DRUGS (2)
  1. CARBIDOPA\LEVODOPA [Suspect]
     Active Substance: CARBIDOPA\LEVODOPA
     Indication: Parkinson^s disease
     Dosage: DISCONTINUED IN 2023
     Route: 050
     Dates: start: 20230623
  2. CARBIDOPA\LEVODOPA [Suspect]
     Active Substance: CARBIDOPA\LEVODOPA
     Dosage: MD: 5.5ML; CRD: 2.2ML/H; CRN: 0.8ML/H; ED: 1.0ML
     Route: 050
     Dates: start: 20231115

REACTIONS (3)
  - Eye operation [Unknown]
  - Restlessness [Unknown]
  - Eye operation [Unknown]

NARRATIVE: CASE EVENT DATE: 20230101
